FAERS Safety Report 20766681 (Version 1)
Quarter: 2022Q2

REPORT INFORMATION
  Report Type: Spontaneous
  Country: US (occurrence: US)
  Receive Date: 20220428
  Receipt Date: 20220428
  Transmission Date: 20220721
  Serious: Yes (Other)
  Sender: FDA-Public Use
  Company Number: US-STRIDES ARCOLAB LIMITED-2022SP004721

PATIENT
  Age: 71 Year
  Sex: Male

DRUGS (7)
  1. PREDNISOLONE [Interacting]
     Active Substance: PREDNISOLONE
     Indication: Lung transplant
     Dosage: UNK INITIAL DOSE NOT STATED
     Route: 065
  2. PREDNISOLONE [Interacting]
     Active Substance: PREDNISOLONE
     Dosage: 5 MILLIGRAM PER DAY
     Route: 065
  3. MYCOPHENOLATE MOFETIL [Interacting]
     Active Substance: MYCOPHENOLATE MOFETIL
     Indication: Lung transplant
     Dosage: UNK
     Route: 065
  4. TACROLIMUS [Interacting]
     Active Substance: TACROLIMUS
     Indication: Lung transplant
     Dosage: UNK INITIAL DOSE NOT STATED
     Route: 065
  5. TACROLIMUS [Interacting]
     Active Substance: TACROLIMUS
     Dosage: UNK GOAL TROUGH 4-6
     Route: 065
  6. RITUXIMAB [Interacting]
     Active Substance: RITUXIMAB
     Indication: Lung transplant
     Dosage: UNK
     Route: 065
  7. TOZINAMERAN [Interacting]
     Active Substance: TOZINAMERAN
     Indication: Immunisation
     Dosage: UNK 4 DOSES
     Route: 065

REACTIONS (4)
  - Drug interaction [Unknown]
  - Therapy non-responder [Unknown]
  - Transplant rejection [Unknown]
  - Off label use [Unknown]
